FAERS Safety Report 22151849 (Version 1)
Quarter: 2023Q1

REPORT INFORMATION
  Report Type: Report from Study
  Country: US (occurrence: US)
  Receive Date: 20230329
  Receipt Date: 20230329
  Transmission Date: 20230418
  Serious: Yes (Death)
  Sender: FDA-Public Use
  Company Number: US-ABBVIE-4708990

PATIENT
  Age: 59 Year
  Sex: Male

DRUGS (1)
  1. HUMIRA [Suspect]
     Active Substance: ADALIMUMAB
     Indication: Psoriasis
     Dosage: CF, FORM STRENGTH 40MG
     Route: 058
     Dates: start: 20220408, end: 20230206

REACTIONS (1)
  - Death [Fatal]

NARRATIVE: CASE EVENT DATE: 20230207
